FAERS Safety Report 10997888 (Version 1)
Quarter: 2015Q2

REPORT INFORMATION
  Report Type: Spontaneous
  Country: US (occurrence: None)
  Receive Date: 20150407
  Receipt Date: 20150407
  Transmission Date: 20150821
  Serious: Yes (Other)
  Sender: FDA-Public Use
  Company Number: None

PATIENT
  Sex: Male
  Weight: 68.49 kg

DRUGS (1)
  1. GUANFACINE ER [Suspect]
     Active Substance: GUANFACINE
     Indication: ATTENTION DEFICIT/HYPERACTIVITY DISORDER
     Dosage: IN AM
     Route: 048
     Dates: start: 201501, end: 201503

REACTIONS (5)
  - Product substitution issue [None]
  - Blood pressure decreased [None]
  - Loss of consciousness [None]
  - Psychomotor hyperactivity [None]
  - Fall [None]
